FAERS Safety Report 7265751-2 (Version None)
Quarter: 2011Q1

REPORT INFORMATION
  Report Type: 
  Country: None (occurrence: None)
  Receive Date: 20110131
  Receipt Date: 20110118
  Transmission Date: 20110831
  Serious: Yes (Hospitalization)
  Sender: FDA-Public Use
  Company Number: FR-ELI_LILLY_AND_COMPANY-FR201101004844

PATIENT
  Age: 55 Year
  Sex: Female

DRUGS (3)
  1. ZYPREXA [Concomitant]
  2. ZYPADHERA [Suspect]
     Indication: PSYCHOTIC DISORDER
     Dosage: 300 MG, UNK
     Route: 030
     Dates: end: 20110110
  3. LASIX [Concomitant]
     Indication: CARDIAC DISORDER

REACTIONS (12)
  - CARDIAC FAILURE [None]
  - SEDATION [None]
  - MYOCLONUS [None]
  - HYPERTENSION [None]
  - GAIT DISTURBANCE [None]
  - HALLUCINATION [None]
  - CHEST PAIN [None]
  - DYSPNOEA [None]
  - TACHYCARDIA [None]
  - CONFUSIONAL STATE [None]
  - SPEECH DISORDER [None]
  - AGITATION [None]
